FAERS Safety Report 8768427 (Version 1)
Quarter: 2012Q4

REPORT INFORMATION
  Report Type: 
  Country: FR (occurrence: FR)
  Receive Date: 20120904
  Receipt Date: 20120904
  Transmission Date: 20130627
  Serious: Yes (Other)
  Sender: FDA-Public Use
  Company Number: FR-UCBSA-064534

PATIENT

DRUGS (2)
  1. LEVETIRACETAM [Suspect]
  2. FLUOXETINE [Interacting]

REACTIONS (2)
  - Convulsion [Unknown]
  - Drug interaction [Unknown]
